FAERS Safety Report 5915535-X (Version None)
Quarter: 2008Q4

REPORT INFORMATION
  Report Type: 
  Country: None (occurrence: None)
  Receive Date: 20081010
  Receipt Date: 20080808
  Transmission Date: 20090506
  Serious: No
  Sender: FDA-Public Use
  Company Number: A0736492A

PATIENT
  Age: 57 Year
  Sex: Female
  Weight: 90.5 kg

DRUGS (9)
  1. TYKERB [Suspect]
     Indication: BREAST CANCER
     Dosage: 1250MG PER DAY
     Route: 048
     Dates: start: 20080704
  2. LEVOTHYROXINE SODIUM [Concomitant]
  3. VITAMINS [Concomitant]
  4. HYDROCODONE BITARTRATE [Concomitant]
  5. NASONEX [Concomitant]
  6. MUCINEX [Concomitant]
  7. OMEPRAZOLE [Concomitant]
  8. RESTASIS [Concomitant]
  9. ALBUTEROL [Concomitant]

REACTIONS (2)
  - DIARRHOEA [None]
  - GASTROINTESTINAL DISORDER [None]
